FAERS Safety Report 6073697-0 (Version None)
Quarter: 2009Q1

REPORT INFORMATION
  Report Type: 
  Country: None (occurrence: None)
  Receive Date: 20090211
  Receipt Date: 20090130
  Transmission Date: 20090719
  Serious: Yes (Death)
  Sender: FDA-Public Use
  Company Number: US-TYCO HEALTHCARE/MALLINCKRODT-T200900203

PATIENT
  Age: 17 Month
  Sex: Male

DRUGS (1)
  1. OXYCODONE HCL EXTENDED-RELEASE [Suspect]

REACTIONS (6)
  - BRAIN INJURY [None]
  - CARDIAC ARREST [None]
  - ENCEPHALOPATHY [None]
  - GLIOSIS [None]
  - RESPIRATORY FAILURE [None]
  - UNRESPONSIVE TO STIMULI [None]
